FAERS Safety Report 20338246 (Version 2)
Quarter: 2022Q2

REPORT INFORMATION
  Report Type: Spontaneous
  Country: CO (occurrence: CO)
  Receive Date: 20220115
  Receipt Date: 20220401
  Transmission Date: 20220720
  Serious: Yes (Other)
  Sender: FDA-Public Use
  Company Number: CO-AMGEN-COLSP2022006376

PATIENT
  Age: 56 Year
  Sex: Male
  Weight: 62 kg

DRUGS (27)
  1. MVASI [Suspect]
     Active Substance: BEVACIZUMAB-AWWB
     Indication: Rectal adenocarcinoma
     Dosage: 310 MILLIGRAM, Q2WK
     Route: 042
     Dates: start: 20211126
  2. MVASI [Suspect]
     Active Substance: BEVACIZUMAB-AWWB
     Indication: Lung cancer metastatic
  3. MVASI [Suspect]
     Active Substance: BEVACIZUMAB-AWWB
     Indication: Hepatic cancer metastatic
  4. NEULASTA [Suspect]
     Active Substance: PEGFILGRASTIM
     Indication: Rectal cancer stage IV
     Dosage: 6 MILLIGRAM/0.6ML, QD
     Route: 058
     Dates: start: 20211126
  5. NEULASTA [Suspect]
     Active Substance: PEGFILGRASTIM
     Indication: Hepatic cancer metastatic
  6. NEULASTA [Suspect]
     Active Substance: PEGFILGRASTIM
     Indication: Metastatic pulmonary embolism
  7. IRINOTECAN [Concomitant]
     Active Substance: IRINOTECAN
     Indication: Rectal adenocarcinoma
     Dosage: 311.4 MILLIGRAM, Q2WK
     Route: 042
     Dates: start: 20211126
  8. IRINOTECAN [Concomitant]
     Active Substance: IRINOTECAN
     Indication: Hepatic cancer metastatic
  9. IRINOTECAN [Concomitant]
     Active Substance: IRINOTECAN
     Indication: Lung cancer metastatic
  10. FLUOROURACIL [Concomitant]
     Active Substance: FLUOROURACIL
     Indication: Rectal adenocarcinoma
     Dosage: 4152 MILLIGRAM, Q2WK
     Route: 042
     Dates: start: 20211126
  11. FLUOROURACIL [Concomitant]
     Active Substance: FLUOROURACIL
     Indication: Hepatic cancer metastatic
  12. FLUOROURACIL [Concomitant]
     Active Substance: FLUOROURACIL
     Indication: Lung cancer metastatic
  13. LEUCOVORIN CALCIUM [Concomitant]
     Active Substance: LEUCOVORIN CALCIUM
     Indication: Hepatic cancer metastatic
     Dosage: 692 MILLIGRAM, Q2WK
     Route: 042
     Dates: start: 20211126
  14. LEUCOVORIN CALCIUM [Concomitant]
     Active Substance: LEUCOVORIN CALCIUM
     Indication: Rectal adenocarcinoma
  15. LEUCOVORIN CALCIUM [Concomitant]
     Active Substance: LEUCOVORIN CALCIUM
     Indication: Lung cancer metastatic
  16. FOSAPREPITANT [Concomitant]
     Active Substance: FOSAPREPITANT
     Indication: Rectal adenocarcinoma
     Dosage: 150 MILLIGRAM, Q2WK
     Route: 042
     Dates: start: 20211126
  17. FOSAPREPITANT [Concomitant]
     Active Substance: FOSAPREPITANT
     Indication: Hepatic cancer metastatic
  18. FOSAPREPITANT [Concomitant]
     Active Substance: FOSAPREPITANT
     Indication: Lung cancer metastatic
  19. PALONOSETRON [Concomitant]
     Active Substance: PALONOSETRON
     Indication: Rectal adenocarcinoma
     Dosage: 25 MILLIGRAM, QD
     Route: 042
     Dates: start: 20211126
  20. PALONOSETRON [Concomitant]
     Active Substance: PALONOSETRON
     Indication: Hepatic cancer metastatic
  21. PALONOSETRON [Concomitant]
     Active Substance: PALONOSETRON
     Indication: Lung cancer metastatic
  22. DEXAMETHASONE PHOSPHATE [Concomitant]
     Active Substance: DEXAMETHASONE PHOSPHATE
     Indication: Rectal adenocarcinoma
     Dosage: 12 MILLIGRAM
     Route: 042
     Dates: start: 20211126
  23. DEXAMETHASONE PHOSPHATE [Concomitant]
     Active Substance: DEXAMETHASONE PHOSPHATE
     Indication: Hepatic cancer metastatic
  24. DEXAMETHASONE PHOSPHATE [Concomitant]
     Active Substance: DEXAMETHASONE PHOSPHATE
     Indication: Lung cancer metastatic
  25. ATROPINE SULFATE [Concomitant]
     Active Substance: ATROPINE SULFATE
     Indication: Hepatic cancer metastatic
     Dosage: 1 MILLIGRAM PER MILLILITRE, QD
     Route: 030
     Dates: start: 20211126
  26. ATROPINE SULFATE [Concomitant]
     Active Substance: ATROPINE SULFATE
     Indication: Rectal adenocarcinoma
  27. ATROPINE SULFATE [Concomitant]
     Active Substance: ATROPINE SULFATE
     Indication: Lung cancer metastatic

REACTIONS (5)
  - Neuropathy peripheral [Not Recovered/Not Resolved]
  - Neutropenia [Unknown]
  - Hyperhidrosis [Not Recovered/Not Resolved]
  - Nausea [Recovering/Resolving]
  - Abdominal pain [Recovering/Resolving]

NARRATIVE: CASE EVENT DATE: 20220105
